FAERS Safety Report 4363166-8 (Version None)
Quarter: 2004Q2

REPORT INFORMATION
  Report Type: 
  Country: None (occurrence: None)
  Receive Date: 20040524
  Receipt Date: 20030418
  Transmission Date: 20050107
  Serious: No
  Sender: FDA-Public Use
  Company Number: US-GLAXOSMITHKLINE-A0405422A

PATIENT
  Age: 35 Year
  Sex: Female

DRUGS (1)
  1. BACTROBAN [Suspect]
     Indication: PROCTITIS
     Route: 061
     Dates: start: 20030410

REACTIONS (2)
  - MEDICATION ERROR [None]
  - PAIN [None]
